FAERS Safety Report 23836739 (Version 1)
Quarter: 2024Q2

REPORT INFORMATION
  Report Type: Report from Study
  Country: US (occurrence: US)
  Receive Date: 20240509
  Receipt Date: 20240509
  Transmission Date: 20240716
  Serious: Yes (Death)
  Sender: FDA-Public Use
  Company Number: US-TAIHOP-2024-004725

PATIENT
  Age: 46 Year
  Sex: Male
  Weight: 165.11 kg

DRUGS (1)
  1. LONSURF [Suspect]
     Active Substance: TIPIRACIL HYDROCHLORIDE\TRIFLURIDINE
     Indication: Appendix cancer
     Dosage: CYCLE 1 STARTED DEC/2023; CURRENT CYCLE UNKNOWN
     Route: 048
     Dates: start: 202312

REACTIONS (1)
  - Death [Fatal]

NARRATIVE: CASE EVENT DATE: 20240204
